FAERS Safety Report 19364225 (Version 1)
Quarter: 2021Q2

REPORT INFORMATION
  Report Type: Spontaneous
  Country: US (occurrence: US)
  Receive Date: 20210602
  Receipt Date: 20210602
  Transmission Date: 20210717
  Serious: Yes (Hospitalization)
  Sender: FDA-Public Use
  Company Number: None

PATIENT
  Sex: Male

DRUGS (1)
  1. MYLERAN [Suspect]
     Active Substance: BUSULFAN
     Indication: CHLOROMA
     Route: 048
     Dates: start: 20210112

REACTIONS (1)
  - Platelet count decreased [None]
